FAERS Safety Report 10661872 (Version 4)
Quarter: 2019Q1

REPORT INFORMATION
  Report Type: Spontaneous
  Country: AT (occurrence: AT)
  Receive Date: 20141218
  Receipt Date: 20190121
  Transmission Date: 20190417
  Serious: Yes (Other)
  Sender: FDA-Public Use
  Company Number: AT-TEVA-470490ISR

PATIENT
  Age: 28 Year
  Sex: Female
  Weight: 68 kg

DRUGS (1)
  1. DANSELLE [Suspect]
     Active Substance: DROSPIRENONE\ETHINYL ESTRADIOL
     Indication: CONTRACEPTION
     Dates: start: 20130830, end: 20140303

REACTIONS (6)
  - Live birth [Unknown]
  - Preterm premature rupture of membranes [Unknown]
  - Pregnancy on oral contraceptive [Unknown]
  - Drug ineffective [Unknown]
  - Maternal exposure before pregnancy [Unknown]
  - Haemorrhage in pregnancy [Unknown]

NARRATIVE: CASE EVENT DATE: 20140104
